FAERS Safety Report 8279737-2 (Version None)
Quarter: 2012Q2

REPORT INFORMATION
  Report Type: 
  Country: None (occurrence: None)
  Receive Date: 20120412
  Receipt Date: 20110728
  Transmission Date: 20120825
  Serious: No
  Sender: FDA-Public Use
  Company Number: US-ASTRAZENECA-2011SE45482

PATIENT
  Sex: Female

DRUGS (27)
  1. OMEPRAZOLE [Suspect]
     Route: 048
  2. CIPRODEX [Concomitant]
  3. MOVE FREE [Concomitant]
     Indication: MUSCULOSKELETAL STIFFNESS
  4. VIVACTIL [Concomitant]
  5. LEVOTHYROXINE SODIUM [Concomitant]
     Indication: THYROID DISORDER
  6. ASTEPRO [Concomitant]
  7. TOBRAMYCIN [Concomitant]
     Indication: EAR DISORDER
  8. XANAX [Concomitant]
     Indication: ANXIETY
  9. EPIPEN [Concomitant]
     Indication: ALLERGY TO ARTHROPOD STING
  10. NEXIUM [Suspect]
     Indication: GASTROOESOPHAGEAL REFLUX DISEASE
     Route: 048
  11. ULTRAM [Concomitant]
  12. ZYRTEC-D 12 HOUR [Concomitant]
     Indication: SINUS CONGESTION
  13. BACTROBAN [Concomitant]
     Indication: BACTERIAL INFECTION
  14. WELLBUTRIN [Concomitant]
     Indication: DEPRESSION
  15. CELEBREX [Concomitant]
     Indication: INFLAMMATION
  16. VERAMIST NASAL SPRAY [Concomitant]
     Indication: MULTIPLE ALLERGIES
  17. LISINOPRIL AND HYDROCHLOROTHIAZIDE [Suspect]
     Indication: HYPERTENSION
     Route: 048
  18. SKELAXIN [Concomitant]
  19. PERIODEX [Concomitant]
     Indication: DENTAL CLEANING
  20. ACCOLATE [Concomitant]
     Indication: ASTHMA
  21. DUONEB [Concomitant]
     Indication: ASTHMA
  22. NYSTETIN OINTMENT [Concomitant]
     Indication: FUNGAL INFECTION
  23. SALINE NASAL SPRAY [Concomitant]
  24. FLEXERIL [Concomitant]
  25. VICODIN [Concomitant]
  26. PROVENTIL [Concomitant]
     Indication: ASTHMA
  27. LASIX [Concomitant]
     Indication: SWELLING

REACTIONS (4)
  - DRUG INEFFECTIVE [None]
  - DEAFNESS [None]
  - COMPRESSION FRACTURE [None]
  - ROTATOR CUFF SYNDROME [None]
